FAERS Safety Report 8942366 (Version 1)
Quarter: 2012Q4

REPORT INFORMATION
  Report Type: Spontaneous
  Country: US (occurrence: None)
  Receive Date: 20121121
  Receipt Date: 20121121
  Transmission Date: 20130627
  Serious: Yes (Hospitalization)
  Sender: FDA-Public Use
  Company Number: SP06208

PATIENT
  Age: 49 Year
  Sex: Female

DRUGS (1)
  1. XIFAXAN [Suspect]
     Indication: CIRRHOSIS LIVER
     Route: 048

REACTIONS (1)
  - Blood glucose abnormal [None]
